FAERS Safety Report 19962570 (Version 1)
Quarter: 2021Q4

REPORT INFORMATION
  Report Type: Spontaneous
  Country: US (occurrence: US)
  Receive Date: 20211013
  Receipt Date: 20211013
  Transmission Date: 20220303
  Serious: Yes (Other)
  Sender: FDA-Public Use
  Company Number: None

PATIENT
  Age: 66 Year
  Sex: Female
  Weight: 73.6 kg

DRUGS (26)
  1. BARICITINIB [Suspect]
     Active Substance: BARICITINIB
     Indication: COVID-19
     Route: 048
     Dates: start: 20210927, end: 20210928
  2. ALBUTEROL/PRATROPIUM [Concomitant]
  3. AZITHROMYCIN ANHYDROUS [Concomitant]
     Active Substance: AZITHROMYCIN ANHYDROUS
  4. CEFTRIAXONE [Concomitant]
     Active Substance: CEFTRIAXONE
  5. CEFTRIAXONE [Concomitant]
     Active Substance: CEFTRIAXONE
  6. DEXAMETHASONE [Concomitant]
     Active Substance: DEXAMETHASONE
  7. UNSPECIFIED INGREDIENT [Concomitant]
     Active Substance: UNSPECIFIED INGREDIENT
  8. FAMOTIDINE [Concomitant]
     Active Substance: FAMOTIDINE
  9. FUROSEMIDE [Concomitant]
     Active Substance: FUROSEMIDE
  10. HEPARIN [Concomitant]
     Active Substance: HEPARIN SODIUM
  11. HYDROXYZINE [Concomitant]
     Active Substance: HYDROXYZINE HYDROCHLORIDE
  12. LOPAMIDOL [Concomitant]
  13. KETOROLAC [Concomitant]
     Active Substance: KETOROLAC TROMETHAMINE
  14. MAGOX [Concomitant]
  15. MUPIROCIN NASAL [Concomitant]
  16. NYSTATIN SWISH ANDSWALLOW [Concomitant]
  17. ONDANSETRON [Concomitant]
     Active Substance: ONDANSETRON
  18. PIPERACILLIN SODIUM\TAZOBACTAM SODIUM [Concomitant]
     Active Substance: PIPERACILLIN SODIUM\TAZOBACTAM SODIUM
  19. POTASSIUM CHLORIDE [Concomitant]
     Active Substance: POTASSIUM CHLORIDE
  20. REMDESIVIR [Concomitant]
     Active Substance: REMDESIVIR
  21. REMDESIVIR [Concomitant]
     Active Substance: REMDESIVIR
  22. ROPINIROLE [Concomitant]
     Active Substance: ROPINIROLE
  23. SODIUM CHLORIDE NASAL SPRAY [Concomitant]
  24. ZINC SULFATE [Concomitant]
     Active Substance: ZINC SULFATE
  25. ACETAMINOPHEN [Concomitant]
     Active Substance: ACETAMINOPHEN
  26. VITAMINS [Concomitant]
     Active Substance: VITAMINS

REACTIONS (1)
  - Liver function test increased [None]

NARRATIVE: CASE EVENT DATE: 20211006
